FAERS Safety Report 7180928-2 (Version None)
Quarter: 2010Q4

REPORT INFORMATION
  Report Type: 
  Country: None (occurrence: None)
  Receive Date: 20101221
  Receipt Date: 20100411
  Transmission Date: 20110411
  Serious: No
  Sender: FDA-Public Use
  Company Number: US-AMGEN-TCS405596

PATIENT

DRUGS (2)
  1. ENBREL [Suspect]
     Indication: RHEUMATOID ARTHRITIS
     Dosage: 50 MG, QWK
     Route: 058
     Dates: start: 20031223
  2. ENBREL [Suspect]
     Indication: JUVENILE ARTHRITIS

REACTIONS (7)
  - AGITATION [None]
  - AMENORRHOEA [None]
  - HOT FLUSH [None]
  - INJECTION SITE PAIN [None]
  - INSOMNIA [None]
  - NIGHT SWEATS [None]
  - RESTLESSNESS [None]
